FAERS Safety Report 24737903 (Version 4)
Quarter: 2025Q3

REPORT INFORMATION
  Report Type: Report from Study
  Country: CO (occurrence: CO)
  Receive Date: 20241216
  Receipt Date: 20250922
  Transmission Date: 20251021
  Serious: Yes (Hospitalization, Other)
  Sender: ROCHE
  Company Number: CO-002147023-NVSC2024CO229237

PATIENT
  Sex: Female
  Weight: 21 kg

DRUGS (1)
  1. XOLAIR [Suspect]
     Active Substance: OMALIZUMAB
     Indication: Asthma
     Dosage: 300 MG, QMO
     Route: 058
     Dates: start: 20240917, end: 202409

REACTIONS (7)
  - Asthmatic crisis [Not Recovered/Not Resolved]
  - Oxygen saturation decreased [Unknown]
  - Product availability issue [Unknown]
  - Asphyxia [Unknown]
  - Malaise [Unknown]
  - Cough [Not Recovered/Not Resolved]
  - General physical health deterioration [Recovered/Resolved]

NARRATIVE: CASE EVENT DATE: 20241001
